FAERS Safety Report 17683413 (Version 1)
Quarter: 2020Q2

REPORT INFORMATION
  Report Type: Report from Study
  Country: US (occurrence: US)
  Receive Date: 20200420
  Receipt Date: 20200420
  Transmission Date: 20200714
  Serious: Yes (Other)
  Sender: FDA-Public Use
  Company Number: US-BIOVITRUM-2019US4220

PATIENT
  Age: 10 Year
  Sex: Male

DRUGS (1)
  1. KINERET [Suspect]
     Active Substance: ANAKINRA
     Indication: PRODUCT USED FOR UNKNOWN INDICATION
     Route: 058
     Dates: start: 20190926

REACTIONS (11)
  - Ill-defined disorder [Unknown]
  - Joint swelling [Unknown]
  - Injection site pain [Recovered/Resolved]
  - Respiratory arrest [Unknown]
  - Swelling face [Unknown]
  - Injection site pain [Unknown]
  - Weight increased [Unknown]
  - Off label use [Not Recovered/Not Resolved]
  - Lip swelling [Unknown]
  - Viral infection [Unknown]
  - Product dose omission [Unknown]

NARRATIVE: CASE EVENT DATE: 20190926
